FAERS Safety Report 18196813 (Version 2)
Quarter: 2020Q3

REPORT INFORMATION
  Report Type: Report from Study
  Country: US (occurrence: US)
  Receive Date: 20200826
  Receipt Date: 20200917
  Transmission Date: 20201103
  Serious: Yes (Hospitalization, Other)
  Sender: FDA-Public Use
  Company Number: US-IPSEN BIOPHARMACEUTICALS, INC.-2020-15016

PATIENT
  Age: 67 Year
  Sex: Male
  Weight: 68.8 kg

DRUGS (15)
  1. ACETAMINOPHEN. [Concomitant]
     Active Substance: ACETAMINOPHEN
     Indication: PAIN
     Dosage: PRN
     Dates: start: 20000615
  2. CALTRATE WITH VITAMIN D [Concomitant]
     Active Substance: CALCIUM CARBONATE\CHOLECALCIFEROL
     Indication: SUPPLEMENTATION THERAPY
  3. LYSINE [Concomitant]
     Active Substance: LYSINE
     Dosage: PRN
     Dates: start: 20190820
  4. PROCHLORPERAZINE. [Concomitant]
     Active Substance: PROCHLORPERAZINE
     Indication: NAUSEA
     Dosage: PRN
     Dates: start: 20190821
  5. LOPERAMIDE [Concomitant]
     Active Substance: LOPERAMIDE
     Indication: DIARRHOEA
     Dosage: PRN
     Dates: start: 20200522
  6. ZOFRAN [Concomitant]
     Active Substance: ONDANSETRON HYDROCHLORIDE
     Indication: VOMITING
  7. CYCLOBENZAPINE [Concomitant]
     Indication: INSOMNIA
     Dates: start: 20050615
  8. VITAMIN D3 [Concomitant]
     Active Substance: CHOLECALCIFEROL
     Indication: VITAMIN SUPPLEMENTATION
  9. ONIVYDE [Suspect]
     Active Substance: IRINOTECAN HYDROCHLORIDE
     Indication: NEUROENDOCRINE CARCINOMA
     Dosage: ONCE ON DAY 1 AND 15
     Route: 042
     Dates: start: 20200316, end: 20200818
  10. DEXAMETHASONE. [Concomitant]
     Active Substance: DEXAMETHASONE
     Indication: PROPHYLAXIS
     Dosage: BID X 2 DAYS (POST CHEMO)
     Dates: start: 20200323
  11. ENOXAPARIN [Concomitant]
     Active Substance: ENOXAPARIN
     Indication: DEEP VEIN THROMBOSIS
     Route: 058
     Dates: start: 20200602
  12. MULTI?VITAMINS [Concomitant]
     Indication: SUPPLEMENTATION THERAPY
     Dosage: 1 (UNITS: NOT REPORTED)
     Dates: start: 20200615
  13. ZOFRAN [Concomitant]
     Active Substance: ONDANSETRON HYDROCHLORIDE
     Indication: NAUSEA
     Dates: start: 20200323
  14. LEUCOVORIN CALCIUM. [Suspect]
     Active Substance: LEUCOVORIN CALCIUM
     Indication: NEUROENDOCRINE CARCINOMA
     Dosage: ONCE ON DAY 1 AND 15
     Route: 042
     Dates: start: 20200316, end: 20200818
  15. 5?FLUOROURACIL [Suspect]
     Active Substance: FLUOROURACIL
     Indication: NEUROENDOCRINE CARCINOMA
     Dosage: OVER 46 HOURS ONCE EVERY TWO WEEKS
     Route: 042
     Dates: start: 20200316, end: 20200818

REACTIONS (2)
  - Hyperbilirubinaemia [Recovered/Resolved]
  - Disease progression [Unknown]

NARRATIVE: CASE EVENT DATE: 202008
